FAERS Safety Report 15096123 (Version 1)
Quarter: 2018Q3

REPORT INFORMATION
  Report Type: Spontaneous
  Country: IT (occurrence: IT)
  Receive Date: 20180702
  Receipt Date: 20180702
  Transmission Date: 20181010
  Serious: Yes (Hospitalization)
  Sender: FDA-Public Use
  Company Number: IT-TEVA-2018-IT-919429

PATIENT
  Age: 74 Year
  Sex: Female

DRUGS (3)
  1. CARDIRENE 160 MG POLVERE PER SOLUZIONE ORALE [Suspect]
     Active Substance: ASPIRIN DL-LYSINE
     Route: 048
  2. RYTMONORM [Suspect]
     Active Substance: PROPAFENONE
     Route: 048
  3. LOBIVON 5 MG COMPRESSE [Concomitant]
     Route: 048

REACTIONS (3)
  - Gastric ulcer [Unknown]
  - Melaena [Unknown]
  - Gastrointestinal haemorrhage [Unknown]

NARRATIVE: CASE EVENT DATE: 20170707
